FAERS Safety Report 6557375-7 (Version None)
Quarter: 2010Q1

REPORT INFORMATION
  Report Type: 
  Country: None (occurrence: None)
  Receive Date: 20100129
  Receipt Date: 20100118
  Transmission Date: 20100710
  Serious: Yes (Other)
  Sender: FDA-Public Use
  Company Number: PHFR2003GB02825

PATIENT
  Sex: Male
  Weight: 110 kg

DRUGS (4)
  1. CLOZARIL [Suspect]
     Indication: SCHIZOPHRENIA
     Dosage: 400 MG/DAY
     Route: 048
     Dates: start: 19991125
  2. CLOZARIL [Suspect]
     Dosage: 50MG AM + 350 MG NOCTE
     Route: 048
     Dates: start: 20011201
  3. ROACCUTANE [Concomitant]
     Indication: ACNE
     Dosage: 60 MG/DAY
     Route: 048
  4. ADAPALENE [Concomitant]
     Indication: ACNE
     Route: 061

REACTIONS (5)
  - BLOOD CHOLESTEROL INCREASED [None]
  - BLOOD TRIGLYCERIDES INCREASED [None]
  - HEPATITIS C [None]
  - HEPATITIS C ANTIBODY POSITIVE [None]
  - LIVER FUNCTION TEST ABNORMAL [None]
